FAERS Safety Report 17505117 (Version 4)
Quarter: 2020Q3

REPORT INFORMATION
  Report Type: Report from Study
  Country: US (occurrence: US)
  Receive Date: 20200305
  Receipt Date: 20200821
  Transmission Date: 20201102
  Serious: Yes (Death, Hospitalization)
  Sender: FDA-Public Use
  Company Number: US-ACTELION-A-NJ2020-202554

PATIENT
  Age: 61 Year
  Sex: Female
  Weight: 81.18 kg

DRUGS (2)
  1. OPSUMIT [Suspect]
     Active Substance: MACITENTAN
     Indication: PULMONARY ARTERIAL HYPERTENSION
     Dosage: 10 MG, QD
     Route: 048
  2. SILDENAFIL. [Concomitant]
     Active Substance: SILDENAFIL

REACTIONS (9)
  - Chronic kidney disease [Fatal]
  - Acute respiratory failure [Fatal]
  - Spinal fracture [Unknown]
  - Speech disorder [Unknown]
  - Systemic scleroderma [Fatal]
  - Dyspnoea [Unknown]
  - Right ventricular failure [Fatal]
  - Scleroderma [Fatal]
  - Pulmonary arterial hypertension [Unknown]

NARRATIVE: CASE EVENT DATE: 20200525
